FAERS Safety Report 4778135-3 (Version None)
Quarter: 2005Q3

REPORT INFORMATION
  Report Type: 
  Country: None (occurrence: None)
  Receive Date: 20050922
  Receipt Date: 20050908
  Transmission Date: 20060218
  Serious: Yes (Death, Hospitalization)
  Sender: FDA-Public Use
  Company Number: 216964

PATIENT
  Age: 55 Year
  Sex: Female
  Weight: 94 kg

DRUGS (4)
  1. BEVACIZUMAB(BEVACIZUMAB) PWDR + SOLVENT, INFUSION SOLN, 100MG [Suspect]
     Indication: OVARIAN CANCER
     Dosage: 1410 MG, Q3W, INTRAVENOUS
     Route: 042
     Dates: start: 20050526, end: 20050721
  2. DECADRON [Concomitant]
  3. HYDROMORPHONE (HYDROMORPHONE HYDROCHLORIDE) [Concomitant]
  4. ATIVAN [Concomitant]

REACTIONS (12)
  - ADHESION [None]
  - CARDIO-RESPIRATORY ARREST [None]
  - GASTROINTESTINAL NEOPLASM [None]
  - HEART RATE INCREASED [None]
  - INTERNATIONAL NORMALISED RATIO INCREASED [None]
  - INTESTINAL PERFORATION [None]
  - LOSS OF CONSCIOUSNESS [None]
  - OPERATIVE HAEMORRHAGE [None]
  - PERITONITIS [None]
  - PROCEDURAL COMPLICATION [None]
  - PYREXIA [None]
  - VOMITING [None]
